FAERS Safety Report 16970346 (Version 7)
Quarter: 2022Q1

REPORT INFORMATION
  Report Type: Spontaneous
  Country: US (occurrence: US)
  Receive Date: 20191029
  Receipt Date: 20220217
  Transmission Date: 20220423
  Serious: Yes (Other)
  Sender: FDA-Public Use
  Company Number: US-GILEAD-2019-0434731

PATIENT
  Age: 41 Year
  Sex: Female
  Weight: 57.143 kg

DRUGS (37)
  1. VIREAD [Suspect]
     Active Substance: TENOFOVIR DISOPROXIL FUMARATE
     Indication: HIV infection
     Dosage: UNK
     Route: 048
     Dates: start: 2001, end: 2010
  2. VIREAD [Suspect]
     Active Substance: TENOFOVIR DISOPROXIL FUMARATE
     Dosage: UNK
     Route: 048
     Dates: start: 20010516, end: 20100420
  3. ACETAMINOPHEN [Concomitant]
     Active Substance: ACETAMINOPHEN
  4. ACYCLOVIR [Concomitant]
     Active Substance: ACYCLOVIR
  5. ASPIRIN [Concomitant]
     Active Substance: ASPIRIN
  6. GANCICLOVIR [Concomitant]
     Active Substance: GANCICLOVIR
  7. OMEPRAZOLE [Concomitant]
     Active Substance: OMEPRAZOLE
  8. PANTOPRAZOLE [Concomitant]
     Active Substance: PANTOPRAZOLE
  9. ISENTRESS [Concomitant]
     Active Substance: RALTEGRAVIR POTASSIUM
  10. LEXIVA [Concomitant]
     Active Substance: FOSAMPRENAVIR CALCIUM
  11. NORVIR [Concomitant]
     Active Substance: RITONAVIR
  12. PREZISTA [Concomitant]
     Active Substance: DARUNAVIR ETHANOLATE
  13. SELZENTRY [Concomitant]
     Active Substance: MARAVIROC
  14. DOXYCYCLINE [Concomitant]
     Active Substance: DOXYCYCLINE
  15. PREDNISOLONE ACETATE [Concomitant]
     Active Substance: PREDNISOLONE ACETATE
  16. BRIMONIDINE [Concomitant]
     Active Substance: BRIMONIDINE TARTRATE
  17. CICLESONIDE [Concomitant]
     Active Substance: CICLESONIDE
  18. AMOXICILLIN [Concomitant]
     Active Substance: AMOXICILLIN
  19. BACTRIM [Concomitant]
     Active Substance: SULFAMETHOXAZOLE\TRIMETHOPRIM
  20. HEPARIN [Concomitant]
     Active Substance: HEPARIN SODIUM
  21. PENICILLIN [Concomitant]
     Active Substance: PENICILLIN
  22. PREDNISONE [Concomitant]
     Active Substance: PREDNISONE
  23. TETRACYCLINE [Concomitant]
     Active Substance: TETRACYCLINE
  24. CRIXIVAN [Concomitant]
     Active Substance: INDINAVIR SULFATE
  25. EPIVIR [Concomitant]
     Active Substance: LAMIVUDINE
  26. FUZEON [Concomitant]
     Active Substance: ENFUVIRTIDE
  27. INVIRASE [Concomitant]
     Active Substance: SAQUINAVIR MESYLATE
  28. KALETRA [Concomitant]
     Active Substance: LOPINAVIR\RITONAVIR
  29. RETROVIR [Concomitant]
     Active Substance: ZIDOVUDINE
  30. SUSTIVA [Concomitant]
     Active Substance: EFAVIRENZ
  31. TRIZIVIR [Concomitant]
     Active Substance: ABACAVIR SULFATE\LAMIVUDINE\ZIDOVUDINE
  32. VIDEX [Concomitant]
     Active Substance: DIDANOSINE
  33. VIDEX EC [Concomitant]
     Active Substance: DIDANOSINE
  34. VIRAMUNE [Concomitant]
     Active Substance: NEVIRAPINE
  35. ZIAGEN [Concomitant]
     Active Substance: ABACAVIR SULFATE
  36. ZERIT [Concomitant]
     Active Substance: STAVUDINE
  37. LISINOPRIL [Concomitant]
     Active Substance: LISINOPRIL

REACTIONS (18)
  - Pathological fracture [Unknown]
  - Osteoporosis [Not Recovered/Not Resolved]
  - Fanconi syndrome acquired [Recovered/Resolved]
  - Renal failure [Unknown]
  - Osteopenia [Not Recovered/Not Resolved]
  - Back pain [Unknown]
  - Vitamin D decreased [Unknown]
  - Bone density decreased [Not Recovered/Not Resolved]
  - Pain [Recovered/Resolved]
  - Emotional distress [Recovered/Resolved]
  - Anxiety [Recovered/Resolved]
  - Anhedonia [Not Recovered/Not Resolved]
  - Economic problem [Not Recovered/Not Resolved]
  - Glycosuria [Unknown]
  - Depression [Recovered/Resolved]
  - Fatigue [Unknown]
  - Weight decreased [Unknown]
  - Proteinuria [Unknown]

NARRATIVE: CASE EVENT DATE: 20080101
